FAERS Safety Report 12767776 (Version 2)
Quarter: 2016Q4

REPORT INFORMATION
  Report Type: Spontaneous
  Country: US (occurrence: US)
  Receive Date: 20160921
  Receipt Date: 20161028
  Transmission Date: 20170207
  Serious: Yes (Hospitalization)
  Sender: FDA-Public Use
  Company Number: US-BAYER-2016-182812

PATIENT
  Age: 31 Year
  Sex: Female
  Weight: 124.72 kg

DRUGS (4)
  1. MICRONOR [Concomitant]
     Active Substance: NORETHINDRONE
  2. PROGESTERONE. [Concomitant]
     Active Substance: PROGESTERONE
  3. MIRENA [Suspect]
     Active Substance: LEVONORGESTREL
     Indication: CONTRACEPTION
     Dosage: 20 MCG/24HR, CONT
     Route: 015
     Dates: start: 20100627, end: 20150212
  4. MIRENA [Suspect]
     Active Substance: LEVONORGESTREL
     Indication: MENORRHAGIA

REACTIONS (3)
  - Device difficult to use [None]
  - Anxiety [None]
  - Uterine perforation [None]

NARRATIVE: CASE EVENT DATE: 20141119
